FAERS Safety Report 21273104 (Version 3)
Quarter: 2022Q4

REPORT INFORMATION
  Report Type: Report from Study
  Country: US (occurrence: US)
  Receive Date: 20220831
  Receipt Date: 20221110
  Transmission Date: 20230113
  Serious: Yes (Hospitalization)
  Sender: FDA-Public Use
  Company Number: US-GILEAD-2022-0595572

PATIENT
  Sex: Male

DRUGS (2)
  1. AMBRISENTAN [Suspect]
     Active Substance: AMBRISENTAN
     Indication: Pulmonary hypertension
     Dosage: 5 MG, QD
     Route: 065
     Dates: start: 20210120
  2. UPTRAVI [Concomitant]
     Active Substance: SELEXIPAG

REACTIONS (12)
  - Asthma [Unknown]
  - Productive cough [Not Recovered/Not Resolved]
  - Dyspnoea [Unknown]
  - Hypersensitivity [Unknown]
  - Heart rate increased [Unknown]
  - Palpitations [Unknown]
  - Joint swelling [Unknown]
  - Abdominal distension [Not Recovered/Not Resolved]
  - Throat tightness [Unknown]
  - Oxygen saturation decreased [Unknown]
  - Pain [Unknown]
  - Wheezing [Not Recovered/Not Resolved]
